FAERS Safety Report 6048334-1 (Version None)
Quarter: 2009Q1

REPORT INFORMATION
  Report Type: 
  Country: None (occurrence: None)
  Receive Date: 20090123
  Receipt Date: 20090112
  Transmission Date: 20090719
  Serious: Yes (Other)
  Sender: FDA-Public Use
  Company Number: DE-PFIZER INC-2008098577

PATIENT

DRUGS (7)
  1. TOVIAZ [Suspect]
     Indication: URGE INCONTINENCE
     Dosage: 4 MG, 1X/DAY
     Route: 048
     Dates: start: 20081027
  2. METOPROLOL TARTRATE AND HYDROCHLOROTHIAZIDE [Suspect]
     Indication: HYPERTENSION
     Dosage: 47.5 UNK, 2X/DAY
  3. METFORMIN HYDROCHLORIDE [Concomitant]
     Indication: DIABETES MELLITUS
     Dosage: 500 UNK, 2X/DAY
  4. GLIMEPIRIDE [Concomitant]
     Indication: DIABETES MELLITUS
     Dosage: 3 MG, 1X/DAY
  5. RAMIPRIL [Concomitant]
     Indication: HYPERTENSION
     Dosage: 10 UNK, 1X/DAY
  6. INSUMAN COMB 25 [Concomitant]
     Dosage: 14IU-0-8IU
  7. ASS-RATIOPHARM [Concomitant]
     Dosage: UNK

REACTIONS (6)
  - BACK PAIN [None]
  - DIZZINESS [None]
  - DRY MOUTH [None]
  - HYPERGLYCAEMIA [None]
  - TRANSIENT ISCHAEMIC ATTACK [None]
  - VOMITING [None]
